FAERS Safety Report 8156340-6 (Version None)
Quarter: 2012Q1

REPORT INFORMATION
  Report Type: 
  Country: None (occurrence: None)
  Receive Date: 20120222
  Receipt Date: 20120217
  Transmission Date: 20120608
  Serious: No
  Sender: FDA-Public Use
  Company Number: US-PFIZER INC-2012043651

PATIENT
  Sex: Female
  Weight: 47.619 kg

DRUGS (3)
  1. HYDROCODONE [Concomitant]
     Indication: PAIN
     Dosage: UNK
  2. LYRICA [Suspect]
     Indication: NEURALGIA
     Dosage: 75 MG, 2X/DAY
     Route: 048
     Dates: start: 20120216, end: 20120217
  3. RITALIN [Concomitant]
     Indication: FATIGUE
     Dosage: UNK

REACTIONS (4)
  - DIZZINESS [None]
  - ANXIETY [None]
  - DISTURBANCE IN ATTENTION [None]
  - VISUAL IMPAIRMENT [None]
